FAERS Safety Report 25605246 (Version 1)
Quarter: 2025Q3

REPORT INFORMATION
  Report Type: Report from Study
  Country: ZA (occurrence: ZA)
  Receive Date: 20250725
  Receipt Date: 20250725
  Transmission Date: 20251020
  Serious: Yes (Other)
  Sender: ALEXION PHARMACEUTICALS
  Company Number: ZA-AstraZeneca-CH-00914453A

PATIENT
  Age: 46 Year
  Sex: Female

DRUGS (6)
  1. BUDESONIDE\FORMOTEROL [Suspect]
     Active Substance: BUDESONIDE\FORMOTEROL
     Indication: Asthma
  2. GABAPENTIN [Concomitant]
     Active Substance: GABAPENTIN
     Indication: Epilepsy
  3. CELEBREX [Concomitant]
     Active Substance: CELECOXIB
     Indication: Pain
  4. Somnil [Concomitant]
  5. PREGABALIN [Concomitant]
     Active Substance: PREGABALIN
     Indication: Epilepsy
  6. ALPRAZOLAM [Concomitant]
     Active Substance: ALPRAZOLAM
     Indication: Anxiety

REACTIONS (1)
  - Accident [Unknown]
